FAERS Safety Report 11588140 (Version 2)
Quarter: 2016Q3

REPORT INFORMATION
  Report Type: Spontaneous
  Country: US (occurrence: US)
  Receive Date: 20151002
  Receipt Date: 20160721
  Transmission Date: 20161109
  Serious: No
  Sender: FDA-Public Use
  Company Number: US-AMGEN-USASP2015100739

PATIENT
  Age: 46 Year
  Sex: Male

DRUGS (1)
  1. ENBREL [Suspect]
     Active Substance: ETANERCEPT
     Indication: PSORIASIS
     Dosage: 50 MG, X 1 WEEKLY
     Route: 058
     Dates: start: 20090729

REACTIONS (3)
  - Eye disorder [Recovered/Resolved]
  - Injection site pain [Unknown]
  - Eye pain [Recovered/Resolved]
